FAERS Safety Report 6729722-4 (Version None)
Quarter: 2010Q2

REPORT INFORMATION
  Report Type: 
  Country: None (occurrence: None)
  Receive Date: 20100518
  Receipt Date: 20100510
  Transmission Date: 20101027
  Serious: Yes (Hospitalization)
  Sender: FDA-Public Use
  Company Number: PHHO2010TW07037

PATIENT
  Sex: Male

DRUGS (1)
  1. AFINITOR [Suspect]
     Indication: HEPATIC NEOPLASM
     Dosage: 7.5MG/DAY
     Route: 048
     Dates: start: 20100407, end: 20100507

REACTIONS (5)
  - ANAL FISTULA [None]
  - ANAL FISTULA EXCISION [None]
  - HAEMORRHOID OPERATION [None]
  - PROCTALGIA [None]
  - RECTAL ABSCESS [None]
